FAERS Safety Report 16182863 (Version 2)
Quarter: 2019Q2

REPORT INFORMATION
  Report Type: Spontaneous
  Country: US (occurrence: US)
  Receive Date: 20190411
  Receipt Date: 20190412
  Transmission Date: 20190711
  Serious: Yes (Other)
  Sender: FDA-Public Use
  Company Number: US-JNJFOC-20190337374

PATIENT
  Sex: Male
  Weight: 88.45 kg

DRUGS (5)
  1. AMLODIPINE [Concomitant]
     Active Substance: AMLODIPINE BESYLATE
     Route: 065
  2. LUPRON [Concomitant]
     Active Substance: LEUPROLIDE ACETATE
     Route: 065
  3. GABAPENTIN. [Concomitant]
     Active Substance: GABAPENTIN
     Route: 065
  4. ZYTIGA [Suspect]
     Active Substance: ABIRATERONE ACETATE
     Indication: PROSTATE CANCER
     Route: 048
     Dates: end: 201805
  5. ZOMETA [Concomitant]
     Active Substance: ZOLEDRONIC ACID
     Route: 042

REACTIONS (2)
  - Treatment failure [Unknown]
  - Prostate cancer [Unknown]
